FAERS Safety Report 4744192-3 (Version None)
Quarter: 2005Q3

REPORT INFORMATION
  Report Type: 
  Country: None (occurrence: None)
  Receive Date: 20050809
  Receipt Date: 20050808
  Transmission Date: 20060218
  Serious: Yes (Hospitalization)
  Sender: FDA-Public Use
  Company Number: 2005S1000092

PATIENT
  Age: 91 Year
  Sex: Male
  Weight: 75 kg

DRUGS (11)
  1. CUBICIN [Suspect]
     Indication: STAPHYLOCOCCAL INFECTION
     Dosage: IV
     Route: 042
     Dates: start: 20050101, end: 20050401
  2. LOSARTAN POTASSIUM [Concomitant]
  3. FUROSEMIDE [Concomitant]
  4. POTASSIUM CHLORIDE [Concomitant]
  5. ALFUZOSIN [Concomitant]
  6. RIFAMPIN [Concomitant]
  7. VANCOMYCIN [Concomitant]
  8. FERROUS SULFATE TAB [Concomitant]
  9. ASCORBIC ACID [Concomitant]
  10. MULTI-VITAMIN [Concomitant]
  11. DOCUSATE SODIUM [Concomitant]

REACTIONS (7)
  - ARTERIAL OCCLUSIVE DISEASE [None]
  - ASTHENIA [None]
  - BLOOD CREATINE PHOSPHOKINASE INCREASED [None]
  - BLOOD CREATININE INCREASED [None]
  - BLOOD LACTATE DEHYDROGENASE INCREASED [None]
  - BLOOD UREA INCREASED [None]
  - ISCHAEMIC ULCER [None]
